FAERS Safety Report 12088562 (Version 3)
Quarter: 2016Q4

REPORT INFORMATION
  Report Type: Spontaneous
  Country: FR (occurrence: FR)
  Receive Date: 20160218
  Receipt Date: 20161026
  Transmission Date: 20170206
  Serious: Yes (Hospitalization)
  Sender: FDA-Public Use
  Company Number: FR-ACCORD-038013

PATIENT
  Age: 55 Year
  Sex: Male

DRUGS (13)
  1. ONDANSETRON ACCORD [Suspect]
     Active Substance: ONDANSETRON
     Indication: PROPHYLAXIS OF NAUSEA AND VOMITING
     Dosage: 1 IN 1 INTAKE. ?STRENGTH: 2 MG/ML
     Route: 042
     Dates: start: 20160115, end: 20160115
  2. PANTOPRAZOLE/PANTOPRAZOLE SODIUM [Concomitant]
  3. SOLUPRED [Concomitant]
     Active Substance: PREDNISOLONE
  4. ENDOXAN [Suspect]
     Active Substance: CYCLOPHOSPHAMIDE
     Indication: SCLERODERMA
     Dosage: STRENGTH: 1000 MG, LYOPHILISATE FOR SOLUTION FOR INJECTION. ?1 IN 1 INTAKE
     Route: 042
     Dates: start: 20160115, end: 20160115
  5. ADCIRCA [Concomitant]
     Active Substance: TADALAFIL
     Dosage: STRENGTH: 20 MG
  6. KARDEGIC [Concomitant]
     Active Substance: ASPIRIN LYSINE
     Dosage: STRENGTH: 75 MG. ?POWDER FOR SOLUTION?ORAL POUCH - BACK
  7. UROMITEXAN [Suspect]
     Active Substance: MESNA
     Indication: DRUG TOXICITY PROPHYLAXIS
     Dosage: STRENGTH: 400 MG, SOLUTION INJECTABLE IV.?1 IN 1 INTAKE
     Route: 042
     Dates: start: 20150115, end: 20150115
  8. TIORFAN [Concomitant]
     Active Substance: RACECADOTRIL
  9. VENLAFAXINE/VENLAFAXINE HYDROCHLORIDE [Concomitant]
  10. TAHOR [Concomitant]
     Active Substance: ATORVASTATIN CALCIUM
  11. CREON [Concomitant]
     Active Substance: PANCRELIPASE AMYLASE\PANCRELIPASE LIPASE\PANCRELIPASE PROTEASE
     Dosage: STRENGTH: 12000 U
  12. MICARDIS [Concomitant]
     Active Substance: TELMISARTAN
  13. TRACLEER [Concomitant]
     Active Substance: BOSENTAN

REACTIONS (5)
  - C-reactive protein increased [Recovered/Resolved]
  - Rash erythematous [Recovered/Resolved]
  - Pruritus [Recovered/Resolved]
  - Face oedema [Recovered/Resolved]
  - Localised oedema [Recovered/Resolved]

NARRATIVE: CASE EVENT DATE: 20160115
